FAERS Safety Report 25242291 (Version 2)
Quarter: 2025Q2

REPORT INFORMATION
  Report Type: Spontaneous
  Country: US (occurrence: US)
  Receive Date: 20250426
  Receipt Date: 20250505
  Transmission Date: 20250717
  Serious: No
  Sender: IPSEN BIOPHARMACEUTICALS, INC.
  Company Number: US-IPSEN Group, Research and Development-2025-09362

PATIENT
  Age: 39 Year
  Sex: Female

DRUGS (3)
  1. DYSPORT [Suspect]
     Active Substance: ABOBOTULINUMTOXINA
     Indication: Skin wrinkling
     Route: 065
     Dates: start: 20250412, end: 20250412
  2. DYSPORT [Suspect]
     Active Substance: ABOBOTULINUMTOXINA
     Indication: Skin wrinkling
  3. DYSPORT [Suspect]
     Active Substance: ABOBOTULINUMTOXINA
     Indication: Off label use

REACTIONS (12)
  - Back pain [Unknown]
  - Tremor [Unknown]
  - Hypoaesthesia [Unknown]
  - Injection site mass [Not Recovered/Not Resolved]
  - Vision blurred [Recovered/Resolved]
  - Contusion [Unknown]
  - Anxiety [Unknown]
  - Injection site inflammation [Unknown]
  - Urticaria [Unknown]
  - Hypoaesthesia oral [Unknown]
  - Off label use [Unknown]
  - Off label use [Unknown]

NARRATIVE: CASE EVENT DATE: 20250412
